FAERS Safety Report 7914348-7 (Version None)
Quarter: 2011Q4

REPORT INFORMATION
  Report Type: 
  Country: None (occurrence: None)
  Receive Date: 20111115
  Receipt Date: 20111107
  Transmission Date: 20120403
  Serious: Yes (Hospitalization, Disabling)
  Sender: FDA-Public Use
  Company Number: DE-JNJFOC-20111102932

PATIENT
  Age: 37 Year
  Sex: Female

DRUGS (10)
  1. HALDOL [Suspect]
     Route: 048
     Dates: start: 20110723, end: 20110729
  2. HALDOL [Suspect]
     Route: 048
     Dates: start: 20110808
  3. HALDOL [Suspect]
     Route: 048
     Dates: start: 20110720, end: 20110722
  4. CLOZAPINE [Suspect]
     Route: 048
     Dates: start: 20110813
  5. CLOZAPINE [Suspect]
     Indication: PRODUCT USED FOR UNKNOWN INDICATION
     Route: 048
     Dates: start: 20110808, end: 20110812
  6. CLOZAPINE [Suspect]
     Route: 048
     Dates: start: 20110805, end: 20110807
  7. HALDOL [Suspect]
     Indication: PRODUCT USED FOR UNKNOWN INDICATION
     Route: 048
     Dates: start: 20110802, end: 20110807
  8. CLOZAPINE [Suspect]
     Route: 048
     Dates: start: 20110730, end: 20110801
  9. HALDOL [Suspect]
     Route: 048
     Dates: start: 20110730, end: 20110801
  10. CLOZAPINE [Suspect]
     Route: 048
     Dates: start: 20110802, end: 20110804

REACTIONS (6)
  - AKATHISIA [None]
  - ABORTION SPONTANEOUS [None]
  - MATERNAL EXPOSURE DURING PREGNANCY [None]
  - DRUG INEFFECTIVE [None]
  - HAEMORRHAGE [None]
  - ACUTE PSYCHOSIS [None]
